FAERS Safety Report 17196775 (Version 1)
Quarter: 2019Q4

REPORT INFORMATION
  Report Type: Spontaneous
  Country: US (occurrence: US)
  Receive Date: 20191202
  Receipt Date: 20191202
  Transmission Date: 20200122
  Serious: Yes (Other)
  Sender: FDA-Public Use
  Company Number: None

PATIENT
  Age: 63 Year
  Sex: Female
  Weight: 92.53 kg

DRUGS (36)
  1. ADAIR [Concomitant]
  2. CASTIL LIQUID SOAL [Concomitant]
  3. DMSO [Concomitant]
     Active Substance: DIMETHYL SULFOXIDE
  4. MAGNESIUM [Concomitant]
     Active Substance: MAGNESIUM
  5. POTASSIUM GLUCONATE [Concomitant]
     Active Substance: POTASSIUM GLUCONATE
  6. ROCEPHIN [Suspect]
     Active Substance: CEFTRIAXONE SODIUM
     Indication: PYELONEPHRITIS
     Dosage: ?          QUANTITY:2000 MG MILLIGRAM(S);?
     Route: 042
     Dates: end: 20191004
  7. LIDOCAIN LIDODERM PATCH 5% [Concomitant]
  8. SYNTHROID [Concomitant]
     Active Substance: LEVOTHYROXINE SODIUM
  9. BYETTA [Concomitant]
     Active Substance: EXENATIDE
  10. MICROLET COLORED LANCETS [Concomitant]
  11. XANAX [Concomitant]
     Active Substance: ALPRAZOLAM
  12. LOVAZA [Concomitant]
     Active Substance: OMEGA-3-ACID ETHYL ESTERS
  13. EUCERINE LOTION [Concomitant]
  14. SALINE NASAL SPRAY [Concomitant]
     Active Substance: SODIUM CHLORIDE
  15. CYCLOBENZAPINE [Concomitant]
  16. CONTOUR [Concomitant]
  17. ADVAIR HFA [Concomitant]
     Active Substance: FLUTICASONE PROPIONATE\SALMETEROL XINAFOATE
  18. SELENIUM [Concomitant]
     Active Substance: SELENIUM
  19. NO STATINS [Concomitant]
  20. FLAGYL [Concomitant]
     Active Substance: METRONIDAZOLE\METRONIDAZOLE HYDROCHLORIDE
  21. TRAMADOL. [Concomitant]
     Active Substance: TRAMADOL
  22. VOLTAREN [Concomitant]
     Active Substance: DICLOFENAC SODIUM
  23. NAFTIN [Concomitant]
     Active Substance: NAFTIFINE HYDROCHLORIDE
  24. VITAMIN D3 [Concomitant]
     Active Substance: CHOLECALCIFEROL
  25. BRIGHTRIGHT STRIP [Concomitant]
  26. AMOX-CLAV [Concomitant]
     Active Substance: AMOXICILLIN\CLAVULANATE POTASSIUM
  27. NANO PIN NEEDLES [Concomitant]
  28. NSAIDS [Concomitant]
     Active Substance: UNSPECIFIED INGREDIENT
  29. HALOBETASOL PROPIONATE CREAM 0.05% [Concomitant]
     Active Substance: HALOBETASOL PROPIONATE
  30. VITAMIN B12 [Concomitant]
     Active Substance: CYANOCOBALAMIN
  31. VITAMIN E [Concomitant]
     Active Substance: .ALPHA.-TOCOPHEROL
  32. TYLENOL [Concomitant]
     Active Substance: ACETAMINOPHEN
  33. IBUPROPHEN [Concomitant]
     Active Substance: IBUPROFEN
  34. ROCEPHIN [Suspect]
     Active Substance: CEFTRIAXONE SODIUM
     Indication: SEPSIS
     Dosage: ?          QUANTITY:2000 MG MILLIGRAM(S);?
     Route: 042
     Dates: end: 20191004
  35. VALIUM [Concomitant]
     Active Substance: DIAZEPAM
  36. CIPRP [Concomitant]

REACTIONS (4)
  - Urinary tract infection [None]
  - Dizziness [None]
  - Vomiting [None]
  - Sepsis [None]

NARRATIVE: CASE EVENT DATE: 20191015
